FAERS Safety Report 21575353 (Version 7)
Quarter: 2023Q4

REPORT INFORMATION
  Report Type: Report from Study
  Country: CO (occurrence: CO)
  Receive Date: 20221110
  Receipt Date: 20231218
  Transmission Date: 20240109
  Serious: Yes (Other)
  Sender: FDA-Public Use
  Company Number: CO-002147023-NVSC2021CO214999

PATIENT
  Sex: Male

DRUGS (3)
  1. TASIGNA [Suspect]
     Active Substance: NILOTINIB
     Indication: Chronic myeloid leukaemia
     Dosage: 400 MG, Q12H (QD)
     Route: 048
  2. TASIGNA [Suspect]
     Active Substance: NILOTINIB
     Dosage: UNK
     Route: 048
  3. TASIGNA [Suspect]
     Active Substance: NILOTINIB
     Dosage: 800 MG, QD
     Route: 048

REACTIONS (15)
  - Cachexia [Unknown]
  - Hepatitis [Unknown]
  - Inflammation [Unknown]
  - Abdominal rigidity [Unknown]
  - Splenomegaly [Unknown]
  - Eating disorder [Unknown]
  - Nervousness [Unknown]
  - Mood altered [Unknown]
  - General physical health deterioration [Unknown]
  - Malaise [Unknown]
  - Abdominal distension [Unknown]
  - Dizziness [Unknown]
  - Pyrexia [Unknown]
  - Inappropriate schedule of product administration [Unknown]
  - Product dose omission issue [Unknown]
